FAERS Safety Report 6583791-3 (Version None)
Quarter: 2010Q1

REPORT INFORMATION
  Report Type: 
  Country: None (occurrence: None)
  Receive Date: 20100216
  Receipt Date: 20091119
  Transmission Date: 20100710
  Serious: No
  Sender: FDA-Public Use
  Company Number: US-ABBOTT-09P-163-0609552-00

PATIENT
  Sex: Female
  Weight: 77.18 kg

DRUGS (4)
  1. SIMCOR [Suspect]
     Indication: BLOOD CHOLESTEROL INCREASED
     Dosage: 500/20 AT BEDTIME
     Dates: start: 20091114, end: 20091117
  2. SYNTHROID [Concomitant]
     Indication: DRUG USE FOR UNKNOWN INDICATION
  3. ASPIRIN [Concomitant]
     Indication: DRUG USE FOR UNKNOWN INDICATION
  4. BLOOD PRESURE MEDICATION [Concomitant]
     Indication: DRUG USE FOR UNKNOWN INDICATION

REACTIONS (1)
  - PARAESTHESIA [None]
